APPROVED DRUG PRODUCT: FOSPHENYTOIN SODIUM
Active Ingredient: FOSPHENYTOIN SODIUM
Strength: EQ 50MG PHENYTOIN NA/ML
Dosage Form/Route: INJECTABLE;INJECTION
Application: A090099 | Product #001
Applicant: AMERICAN REGENT INC
Approved: May 13, 2010 | RLD: No | RS: No | Type: DISCN